FAERS Safety Report 4563927-6 (Version None)
Quarter: 2005Q1

REPORT INFORMATION
  Report Type: 
  Country: None (occurrence: None)
  Receive Date: 20050121
  Receipt Date: 20050103
  Transmission Date: 20050727
  Serious: Yes (Other)
  Sender: FDA-Public Use
  Company Number: USA050187245

PATIENT
  Age: 38 Year
  Sex: Male
  Weight: 77 kg

DRUGS (2)
  1. REGULAR INSULIN, BEEF [Suspect]
     Indication: DIABETES MELLITUS
     Dates: start: 19420101, end: 19820101
  2. PROTAMINE ZINC INSULIN [Suspect]
     Indication: DIABETES MELLITUS
     Dates: start: 19420101, end: 19820101

REACTIONS (3)
  - DIABETIC RETINOPATHY [None]
  - EYE HAEMORRHAGE [None]
  - PHARMACEUTICAL PRODUCT COMPLAINT [None]
